FAERS Safety Report 16222856 (Version 3)
Quarter: 2019Q2

REPORT INFORMATION
  Report Type: Spontaneous
  Country: US (occurrence: US)
  Receive Date: 20190422
  Receipt Date: 20190604
  Transmission Date: 20190711
  Serious: Yes (Hospitalization)
  Sender: FDA-Public Use
  Company Number: US-PFIZER INC-2019160021

PATIENT
  Age: 59 Year
  Sex: Female
  Weight: 104 kg

DRUGS (23)
  1. GOCOVRI [Suspect]
     Active Substance: AMANTADINE
     Dosage: 274 MG, 1X/DAY [AT BEDTIME]
     Route: 048
     Dates: start: 20180828
  2. SINEMET [Concomitant]
     Active Substance: CARBIDOPA\LEVODOPA
     Dosage: (CARBIDOPA: 25, LEVODOPA: 100), 4X/DAY [MORN-NOON-EVE-BED, IF NEEDED ADD 1]
  3. COMTAM [Concomitant]
     Dosage: UNK
     Dates: start: 20180906, end: 20190408
  4. PAXIL [Concomitant]
     Active Substance: PAROXETINE HYDROCHLORIDE
     Dosage: 40 MG, 1X/DAY (MORN - WHITE MED ROUND TABLET)
     Dates: start: 1989
  5. OMEGA 3 [FISH OIL] [Concomitant]
     Active Substance: FISH OIL
     Dosage: (860 EPA/ 580 DHA), 1X/DAY (2 AT BED)
  6. METHYLPREDNISOLONE. [Suspect]
     Active Substance: METHYLPREDNISOLONE
     Indication: NASOPHARYNGITIS
     Dosage: 4 MG, UNK
     Dates: start: 201902, end: 2019
  7. GOCOVRI [Suspect]
     Active Substance: AMANTADINE
     Indication: DYSKINESIA
     Dosage: 137 MG, 1X/DAY (AT BEDTIME FOR 7 DAYS)
     Route: 048
     Dates: start: 20180821, end: 20180827
  8. CARBIDOPA/LEVODOPA [Concomitant]
     Dosage: CARBIDOPA 25 MG/ LEVODOPA 200 MG, 1X/DAY
  9. CARBIDOPA/LEVODOPA [Concomitant]
     Indication: DYSKINESIA
     Dosage: UNK
     Dates: start: 199812
  10. SINEMET [Concomitant]
     Active Substance: CARBIDOPA\LEVODOPA
     Dosage: (CARBIDOPA: 25MG, LEVODOPA: 100MG)
     Dates: start: 20180906
  11. MIRAPEX [Concomitant]
     Active Substance: PRAMIPEXOLE DIHYDROCHLORIDE
     Dosage: 1 MG, 4X/DAY (MORN- NOON-EVE-BED (ADD 1 IF NEEDED)
     Dates: start: 1997
  12. KLONOPIN [Concomitant]
     Active Substance: CLONAZEPAM
     Dosage: 1 MG, 1X/DAY (BED - ADD 1/2 IF NEEDED)
     Dates: start: 2016
  13. FISH OIL [COD-LIVER OIL] [Concomitant]
     Dosage: UNK
     Dates: start: 201812
  14. GOCOVRI [Suspect]
     Active Substance: AMANTADINE
     Dosage: 274 MG, 1X/DAY; (2 AT BED)
  15. CARBIDOPA/LEVODOPA [Concomitant]
     Dosage: CARBIDOPA: 50, LEVODOPA: 200,
     Dates: start: 20180821
  16. SELEGILINE [Concomitant]
     Active Substance: SELEGILINE
     Dosage: UNK
     Dates: start: 20180906, end: 20190408
  17. SYNTHROID [Concomitant]
     Active Substance: LEVOTHYROXINE SODIUM
     Dosage: 112 UG, 1X/DAY (MORN)
     Dates: start: 1989
  18. SYMBICORT [Concomitant]
     Active Substance: BUDESONIDE\FORMOTEROL FUMARATE DIHYDRATE
     Dosage: UNK
     Dates: start: 20180906
  19. GOCOVRI [Suspect]
     Active Substance: AMANTADINE
     Dosage: 274 MG, 1X/DAY(AT BEDTIME)
     Route: 048
     Dates: start: 20180828
  20. SYNVISC-ONE [Concomitant]
     Active Substance: HYLAN G-F 20
     Dosage: UNK
     Dates: start: 20180906
  21. VENTOLIN HFA [Concomitant]
     Active Substance: ALBUTEROL SULFATE
     Dosage: UNK
     Dates: start: 20180906
  22. EXELON [Concomitant]
     Active Substance: RIVASTIGMINE TARTRATE
     Dosage: 1.5 MG, 2X/DAY (MORN-BED)
  23. SINGULAIR [Concomitant]
     Active Substance: MONTELUKAST SODIUM
     Dosage: UNK
     Dates: start: 20180906

REACTIONS (14)
  - Insomnia [Not Recovered/Not Resolved]
  - Off label use [Recovered/Resolved]
  - Paraesthesia [Recovered/Resolved]
  - Hypokinesia [Recovered/Resolved]
  - Product dose omission [Recovered/Resolved]
  - Hallucinations, mixed [Recovered/Resolved]
  - Mobility decreased [Recovered/Resolved]
  - Product use in unapproved indication [Recovered/Resolved]
  - Fall [Recovered/Resolved]
  - Fatigue [Not Recovered/Not Resolved]
  - Scratch [Recovered/Resolved]
  - Head injury [Recovered/Resolved]
  - Contusion [Recovered/Resolved]
  - Nasal injury [Recovered/Resolved]

NARRATIVE: CASE EVENT DATE: 2018
